FAERS Safety Report 4310564-4 (Version None)
Quarter: 2004Q1

REPORT INFORMATION
  Report Type: 
  Country: None (occurrence: None)
  Receive Date: 20040303
  Receipt Date: 20040219
  Transmission Date: 20041129
  Serious: Yes (Other)
  Sender: FDA-Public Use
  Company Number: GB-GLAXOSMITHKLINE-B0324016A

PATIENT
  Age: 50 Year
  Sex: Male
  Weight: 80 kg

DRUGS (2)
  1. AUGMENTIN [Suspect]
     Indication: POSTOPERATIVE INFECTION
     Dosage: 375MG PER DAY
     Route: 048
     Dates: start: 20030221, end: 20030223
  2. IBUPROFEN [Concomitant]
     Indication: PAIN
     Dosage: 400MG PER DAY
     Route: 048
     Dates: start: 20030201

REACTIONS (2)
  - DISCOMFORT [None]
  - MUSCLE SPASMS [None]
